FAERS Safety Report 4955406-9 (Version None)
Quarter: 2006Q1

REPORT INFORMATION
  Report Type: 
  Country: None (occurrence: None)
  Receive Date: 20060322
  Receipt Date: 20060314
  Transmission Date: 20060701
  Serious: Yes (Death)
  Sender: FDA-Public Use
  Company Number: ZICO001202

PATIENT
  Age: 54 Year
  Sex: Male
  Weight: 82.7 kg

DRUGS (5)
  1. PRIALTZ (ZICONOTIDE INTRATHECAL INFUSION) SOLUTION [Suspect]
     Indication: PAIN
     Dosage: 6 UG, ONCE/DAY, INTRATHECAL
     Route: 037
     Dates: start: 20050321, end: 20050325
  2. SOMA [Concomitant]
  3. LOPRESSOR [Concomitant]
  4. ALTACE [Concomitant]
  5. VICODIN [Concomitant]

REACTIONS (2)
  - MYOCARDIAL INFARCTION [None]
  - SUDDEN DEATH [None]
